FAERS Safety Report 22209221 (Version 2)
Quarter: 2023Q4

REPORT INFORMATION
  Report Type: Report from Study
  Country: BR (occurrence: BR)
  Receive Date: 20230413
  Receipt Date: 20231208
  Transmission Date: 20240110
  Serious: Yes (Other)
  Sender: FDA-Public Use
  Company Number: BR-CELLTRION INC.-2023BR007431

PATIENT

DRUGS (4)
  1. INFLIXIMAB [Suspect]
     Active Substance: INFLIXIMAB
     Indication: Rheumatoid arthritis
     Dosage: UNK
     Route: 042
     Dates: start: 20220704
  2. INFLIXIMAB [Suspect]
     Active Substance: INFLIXIMAB
     Dosage: UNK
     Route: 042
     Dates: start: 20231030
  3. PREGABALIN [Concomitant]
     Active Substance: PREGABALIN
     Indication: Sleep disorder
     Dosage: UNK, ONCE A DAY (14 YEARS-ONGOING)
     Route: 048
  4. DULOXETINE HYDROCHLORIDE [Concomitant]
     Active Substance: DULOXETINE HYDROCHLORIDE
     Indication: Fibromyalgia
     Dosage: UNK, ONCE A DAY (14 YEARS-ONGOING)
     Route: 048

REACTIONS (10)
  - Blindness [Unknown]
  - Fall [Unknown]
  - Joint injury [Unknown]
  - Pain [Unknown]
  - Vision blurred [Unknown]
  - Gait disturbance [Unknown]
  - Pain in extremity [Unknown]
  - Loss of personal independence in daily activities [Unknown]
  - Therapy interrupted [Unknown]
  - Product availability issue [Unknown]
